FAERS Safety Report 16382413 (Version 1)
Quarter: 2019Q2

REPORT INFORMATION
  Report Type: Spontaneous
  Country: FR (occurrence: FR)
  Receive Date: 20190603
  Receipt Date: 20190603
  Transmission Date: 20190711
  Serious: Yes (Death)
  Sender: FDA-Public Use
  Company Number: FR-SA-2019SA147779

PATIENT
  Age: 80 Year
  Sex: Male
  Weight: 87 kg

DRUGS (6)
  1. LOVENOX [Suspect]
     Active Substance: ENOXAPARIN SODIUM
     Indication: THROMBOSIS PROPHYLAXIS
     Dosage: 14000 IU, QD
     Route: 058
     Dates: start: 201811, end: 20181120
  2. DOXAZOSINE [DOXAZOSIN] [Concomitant]
     Indication: BENIGN PROSTATIC HYPERPLASIA
     Dosage: 4 MG, QD
     Route: 048
  3. ALPRAZOLAM. [Concomitant]
     Active Substance: ALPRAZOLAM
     Indication: ANXIETY
     Dosage: 0.25 MG, UNK
     Route: 048
  4. FINASTERIDE. [Concomitant]
     Active Substance: FINASTERIDE
     Indication: BENIGN PROSTATIC HYPERPLASIA
     Dosage: 5 MG, QD
     Route: 048
  5. WARFARIN SODIUM. [Interacting]
     Active Substance: WARFARIN SODIUM
     Indication: THROMBOSIS PROPHYLAXIS
     Dosage: 6 MG, QD
     Route: 048
     Dates: start: 20181115, end: 20181118
  6. METOPROLOL FUMARATE [Concomitant]
     Active Substance: METOPROLOL FUMARATE
     Indication: MIGRAINE PROPHYLAXIS
     Dosage: 100 MG, QD
     Route: 048

REACTIONS (3)
  - Retroperitoneal haematoma [Fatal]
  - Drug interaction [Fatal]
  - Anaemia [Fatal]

NARRATIVE: CASE EVENT DATE: 20181119
